FAERS Safety Report 9530699 (Version 1)
Quarter: 2013Q3

REPORT INFORMATION
  Report Type: Spontaneous
  Country: US (occurrence: None)
  Receive Date: 20130916
  Receipt Date: 20130916
  Transmission Date: 20140515
  Serious: Yes (Death)
  Sender: FDA-Public Use
  Company Number: None

PATIENT
  Age: 6 Year
  Sex: Male
  Weight: 25.6 kg

DRUGS (9)
  1. BOTOX [Suspect]
     Indication: CEREBRAL PALSY
     Dosage: 10 UNITS/INJ TOTAL 400 UNITS
     Route: 030
     Dates: start: 20130910
  2. BECLOMETHASONE [Concomitant]
  3. MENS POTENT FORMULA (CALCIUM, VITAMIN E/FA VITAMIN B6 HERBS) [Concomitant]
  4. CETIRIZINE [Suspect]
  5. IPRATROPIUM(ATROVENT HFA) [Concomitant]
  6. KETOIFEN(ZADITOR) [Concomitant]
  7. MELATONIN [Concomitant]
  8. SCOPOLAMINE(TRANSDERM-SCOP) [Concomitant]
  9. BACLOFEN [Concomitant]

REACTIONS (1)
  - Death [None]
